FAERS Safety Report 19116453 (Version 1)
Quarter: 2021Q2

REPORT INFORMATION
  Report Type: Spontaneous
  Country: RU (occurrence: RU)
  Receive Date: 20210409
  Receipt Date: 20210409
  Transmission Date: 20210717
  Serious: Yes (Other)
  Sender: FDA-Public Use
  Company Number: RU-ASTRAZENECA-2021A262313

PATIENT
  Age: 48 Year
  Sex: Male
  Weight: 62 kg

DRUGS (1)
  1. DURVALUMAB. [Suspect]
     Active Substance: DURVALUMAB
     Indication: NON-SMALL CELL LUNG CANCER STAGE III
     Route: 042
     Dates: start: 20210318

REACTIONS (1)
  - Body temperature increased [Recovered/Resolved]

NARRATIVE: CASE EVENT DATE: 20210318
